FAERS Safety Report 7340214-4 (Version None)
Quarter: 2011Q1

REPORT INFORMATION
  Report Type: 
  Country: None (occurrence: None)
  Receive Date: 20110309
  Receipt Date: 20110224
  Transmission Date: 20110831
  Serious: Yes (Other)
  Sender: FDA-Public Use
  Company Number: IE-BRISTOL-MYERS SQUIBB COMPANY-15594286

PATIENT
  Age: 32 Year
  Sex: Female

DRUGS (3)
  1. ATAZANAVIR [Suspect]
     Indication: HIV INFECTION
     Route: 048
  2. RITONAVIR [Suspect]
     Indication: HIV INFECTION
     Route: 048
  3. TRUVADA [Suspect]
     Indication: HIV INFECTION
     Dosage: 1DF: 1 TABS
     Route: 048

REACTIONS (3)
  - ABORTION SPONTANEOUS [None]
  - CERVICAL INCOMPETENCE [None]
  - PREGNANCY [None]
